FAERS Safety Report 19489218 (Version 1)
Quarter: 2021Q3

REPORT INFORMATION
  Report Type: Spontaneous
  Country: US (occurrence: US)
  Receive Date: 20210703
  Receipt Date: 20210703
  Transmission Date: 20211014
  Serious: No
  Sender: FDA-Public Use
  Company Number: US-SA-2021SA211315

PATIENT
  Age: 58 Year
  Sex: Male

DRUGS (5)
  1. ALLEGRA [Suspect]
     Active Substance: FEXOFENADINE HYDROCHLORIDE
     Indication: URTICARIA
     Dosage: 540 MG, QD (3 PILLS EVERYDAY)
     Dates: start: 202105
  2. ALLEGRA [Suspect]
     Active Substance: FEXOFENADINE HYDROCHLORIDE
     Dosage: 270 MG, QD (ONE AND A HALF TABLETS FOR 2 WEEKS)
     Dates: start: 2021
  3. ALLEGRA [Suspect]
     Active Substance: FEXOFENADINE HYDROCHLORIDE
     Indication: RASH
     Dosage: 360 MG, QD (2 PILLS FOR 1 WEEK)
     Dates: start: 2021
  4. ALLEGRA [Suspect]
     Active Substance: FEXOFENADINE HYDROCHLORIDE
     Dosage: 180 MG, QD (ONE TABLET FOR 3 WEEKS)
     Dates: start: 2021
  5. ALLEGRA [Suspect]
     Active Substance: FEXOFENADINE HYDROCHLORIDE
     Dosage: 90 MG, QD (HALF TABLET FOR 3 WEEKS)
     Dates: start: 2021

REACTIONS (1)
  - Product prescribing issue [Unknown]

NARRATIVE: CASE EVENT DATE: 202105
